FAERS Safety Report 18480924 (Version 2)
Quarter: 2021Q2

REPORT INFORMATION
  Report Type: Spontaneous
  Country: CA (occurrence: CA)
  Receive Date: 20201109
  Receipt Date: 20210623
  Transmission Date: 20210717
  Serious: Yes (Other)
  Sender: FDA-Public Use
  Company Number: CA-SAMSUNG BIOEPIS-SB-2020-33784

PATIENT
  Age: 25 Year
  Sex: Male

DRUGS (1)
  1. INFLIXIMAB [Suspect]
     Active Substance: INFLIXIMAB
     Indication: ANKYLOSING SPONDYLITIS
     Route: 042

REACTIONS (10)
  - Heart rate decreased [Unknown]
  - Musculoskeletal stiffness [Unknown]
  - Haematochezia [Unknown]
  - Chest pain [Unknown]
  - Feeling hot [Unknown]
  - Arthralgia [Unknown]
  - Erythema [Unknown]
  - Frequent bowel movements [Unknown]
  - Pain in extremity [Unknown]
  - Dyspnoea [Unknown]
